FAERS Safety Report 5376794-8 (Version None)
Quarter: 2007Q3

REPORT INFORMATION
  Report Type: 
  Country: None (occurrence: None)
  Receive Date: 20070703
  Receipt Date: 20070627
  Transmission Date: 20080115
  Serious: Yes (Other)
  Sender: FDA-Public Use
  Company Number: PHEH2007US06681

PATIENT
  Sex: Female

DRUGS (11)
  1. ZELNORM [Suspect]
     Indication: IRRITABLE BOWEL SYNDROME
     Dosage: 6MG QD TO BID
     Route: 048
     Dates: start: 20021002, end: 20070407
  2. MEDROL [Concomitant]
     Dates: start: 20050315
  3. MAXAIR MDI [Concomitant]
  4. FLEXERIL [Concomitant]
     Indication: BACK PAIN
     Dosage: 5 MG, PRN
  5. DARVOCET [Concomitant]
     Indication: FIBROMYALGIA
     Dosage: 500 UNK, PRN
  6. PLAVIX [Concomitant]
     Dosage: 75 MG, QOD
  7. SINGULAIR [Concomitant]
     Indication: ASTHMA
  8. PREVACID [Concomitant]
     Indication: GASTROOESOPHAGEAL REFLUX DISEASE
     Dosage: 30 MG, BID
     Dates: start: 20020601
  9. DIOVAN [Concomitant]
     Dosage: 160/12.5 QD
  10. ACTONEL [Concomitant]
     Dosage: UNK, QW
  11. DETROL [Concomitant]
     Dosage: 2 MG, QD

REACTIONS (10)
  - CHEST DISCOMFORT [None]
  - CHEST PAIN [None]
  - DIZZINESS [None]
  - FIBROMUSCULAR DYSPLASIA [None]
  - HEART RATE ABNORMAL [None]
  - HYPOAESTHESIA [None]
  - LOSS OF CONSCIOUSNESS [None]
  - NERVOUS SYSTEM DISORDER [None]
  - SPEECH DISORDER [None]
  - STRESS [None]
